FAERS Safety Report 18346276 (Version 4)
Quarter: 2020Q4

REPORT INFORMATION
  Report Type: Spontaneous
  Country: US (occurrence: US)
  Receive Date: 20201005
  Receipt Date: 20201204
  Transmission Date: 20210114
  Serious: Yes (Other)
  Sender: FDA-Public Use
  Company Number: US-PFIZER INC-2020382489

PATIENT
  Age: 73 Year
  Sex: Female

DRUGS (1)
  1. XELJANZ XR [Suspect]
     Active Substance: TOFACITINIB CITRATE
     Dosage: 11 MG
     Dates: start: 202009

REACTIONS (12)
  - Gait inability [Unknown]
  - Mobility decreased [Recovering/Resolving]
  - Malaise [Unknown]
  - Mental disorder [Unknown]
  - Initial insomnia [Recovering/Resolving]
  - Feeling abnormal [Recovering/Resolving]
  - Asthenia [Unknown]
  - Pyrexia [Unknown]
  - Blood sodium decreased [Unknown]
  - COVID-19 [Unknown]
  - Malaise [Unknown]
  - Musculoskeletal disorder [Unknown]

NARRATIVE: CASE EVENT DATE: 2020
